FAERS Safety Report 12140569 (Version 2)
Quarter: 2016Q2

REPORT INFORMATION
  Report Type: Spontaneous
  Country: US (occurrence: US)
  Receive Date: 20160303
  Receipt Date: 20160404
  Transmission Date: 20160815
  Serious: No
  Sender: FDA-Public Use
  Company Number: US-GLAXOSMITHKLINE-US2016030180

PATIENT
  Age: 53 Year
  Sex: Female

DRUGS (2)
  1. FLONASE [Suspect]
     Active Substance: FLUTICASONE PROPIONATE
     Indication: EYE DISORDER
  2. FLONASE [Suspect]
     Active Substance: FLUTICASONE PROPIONATE
     Indication: SINUS DISORDER
     Dosage: UNK

REACTIONS (4)
  - Product quality issue [Unknown]
  - Dry eye [Unknown]
  - Drug ineffective for unapproved indication [Unknown]
  - Incorrect drug administration duration [Unknown]
